FAERS Safety Report 16174399 (Version 7)
Quarter: 2019Q3

REPORT INFORMATION
  Report Type: Spontaneous
  Country: US (occurrence: US)
  Receive Date: 20190409
  Receipt Date: 20190906
  Transmission Date: 20191004
  Serious: Yes (Congenital Anomaly, Other)
  Sender: FDA-Public Use
  Company Number: PHEH2019US015228

PATIENT
  Sex: Female

DRUGS (2)
  1. ZOFRAN [Suspect]
     Active Substance: ONDANSETRON HYDROCHLORIDE
     Indication: FOETAL EXPOSURE DURING PREGNANCY
     Route: 064
  2. ONDANSETRON [Suspect]
     Active Substance: ONDANSETRON
     Indication: FOETAL EXPOSURE DURING PREGNANCY
     Dosage: MOTHER DOSE: 04 MG, PRN
     Route: 064

REACTIONS (12)
  - Cleft lip [Unknown]
  - Otitis media chronic [Unknown]
  - Deformity [Unknown]
  - Emotional distress [Unknown]
  - Anhedonia [Unknown]
  - Eustachian tube dysfunction [Unknown]
  - Pain [Unknown]
  - Foetal exposure during pregnancy [Unknown]
  - Injury [Not Recovered/Not Resolved]
  - Conductive deafness [Unknown]
  - Cleft palate [Unknown]
  - Poor feeding infant [Unknown]
